FAERS Safety Report 7417930-9 (Version None)
Quarter: 2011Q2

REPORT INFORMATION
  Report Type: 
  Country: None (occurrence: None)
  Receive Date: 20110415
  Receipt Date: 20110411
  Transmission Date: 20111010
  Serious: Yes (Hospitalization)
  Sender: FDA-Public Use
  Company Number: JP-ACTELION-A-CH2011-44788

PATIENT
  Sex: Female
  Weight: 49 kg

DRUGS (23)
  1. TRACLEER [Suspect]
     Dosage: 31.25 MG, QD
     Route: 048
     Dates: start: 20091031, end: 20091106
  2. TRACLEER [Suspect]
     Dosage: 62.5 MG, BID
     Route: 048
     Dates: start: 20091215, end: 20100121
  3. FUROSEMIDE [Concomitant]
  4. CAPTOPRIL [Concomitant]
  5. ATORVASTATIN CALCIUM [Concomitant]
  6. OXYGEN [Concomitant]
  7. LOSARTAN POTASSIUM [Concomitant]
  8. TRACLEER [Suspect]
     Dosage: 62.5 MG, QD
     Route: 048
     Dates: start: 20091115, end: 20091127
  9. RABEPRAZOLE SODIUM [Concomitant]
  10. TRACLEER [Suspect]
     Dosage: 46.875 MG, BID
     Route: 048
     Dates: start: 20091128, end: 20091214
  11. SPIRONOLACTONE [Concomitant]
  12. AMBROXOL HYDROCHLORIDE [Concomitant]
  13. CARBOCISTEINE [Concomitant]
  14. TRACLEER [Suspect]
     Indication: PULMONARY ARTERIAL HYPERTENSION
     Dosage: 125 MG, BID
     Route: 048
     Dates: start: 20100422, end: 20100826
  15. TRACLEER [Suspect]
     Dosage: 93.75 MG, BID
     Route: 048
     Dates: start: 20100130, end: 20100421
  16. BERAPROST SODIUM [Concomitant]
  17. REBAMIPIDE [Concomitant]
  18. DEXTROMETHORPHAN HYDROBROMIDE [Concomitant]
  19. TRACLEER [Suspect]
     Dosage: 15.63 MG, QD
     Route: 048
     Dates: start: 20091026, end: 20091030
  20. TRACLEER [Suspect]
     Dosage: 46.88 MG, QD
     Route: 048
     Dates: start: 20091107, end: 20091114
  21. TRACLEER [Suspect]
     Dosage: 78.125 MG, BID
     Route: 048
     Dates: start: 20100122, end: 20100129
  22. TRACLEER [Suspect]
     Dosage: 62.5 MG, BID
     Route: 048
     Dates: start: 20100827
  23. CEFUROXIME AXETIL [Concomitant]

REACTIONS (5)
  - CARDIAC FAILURE CHRONIC [None]
  - HEPATIC FUNCTION ABNORMAL [None]
  - GAMMA-GLUTAMYLTRANSFERASE INCREASED [None]
  - ASPARTATE AMINOTRANSFERASE INCREASED [None]
  - ALANINE AMINOTRANSFERASE INCREASED [None]
